FAERS Safety Report 16187033 (Version 1)
Quarter: 2019Q2

REPORT INFORMATION
  Report Type: Spontaneous
  Country: US (occurrence: US)
  Receive Date: 20190411
  Receipt Date: 20190411
  Transmission Date: 20190711
  Serious: No
  Sender: FDA-Public Use
  Company Number: US-TEVA-2019-US-1033407

PATIENT
  Sex: Male

DRUGS (1)
  1. BUPRENORPHINE, 15 MCG/HR [Suspect]
     Active Substance: BUPRENORPHINE
     Dosage: 15 MCG/HR
     Route: 065

REACTIONS (3)
  - Pruritus [Unknown]
  - Product adhesion issue [Unknown]
  - Erythema [Unknown]
